FAERS Safety Report 15470926 (Version 1)
Quarter: 2018Q4

REPORT INFORMATION
  Report Type: Report from Study
  Country: None (occurrence: KW)
  Receive Date: 20181006
  Receipt Date: 20181006
  Transmission Date: 20190205
  Serious: Yes (Hospitalization)
  Sender: FDA-Public Use
  Company Number: KW-ABBVIE-18S-091-2504543-00

PATIENT
  Age: 51 Year
  Sex: Female
  Weight: 47 kg

DRUGS (8)
  1. LOSEC [Concomitant]
     Active Substance: OMEPRAZOLE
     Indication: PRODUCT USED FOR UNKNOWN INDICATION
     Dosage: BD
     Route: 048
  2. PYRIDOXINE;RIBOFLAVIN;THIAMINE [Concomitant]
     Indication: PRODUCT USED FOR UNKNOWN INDICATION
     Dosage: 2/2/2MG,OD
     Route: 048
     Dates: start: 20180926
  3. DUODOPA [Suspect]
     Active Substance: CARBIDOPA\LEVODOPA
     Indication: PARKINSON^S DISEASE
     Dosage: CONTINUOUS OVER 16 HOURS (MORNING DOSE 12ML/HR, CONTINUOUS RATE 2.1 ML/HR, EXTRA DOSE 2ML)
     Route: 050
     Dates: start: 20180806, end: 20180807
  4. DISFLATYL [Concomitant]
     Active Substance: DIMETHICONE
     Indication: PRODUCT USED FOR UNKNOWN INDICATION
     Dosage: TID
     Route: 048
  5. FOLIC ACID. [Concomitant]
     Active Substance: FOLIC ACID
     Indication: PRODUCT USED FOR UNKNOWN INDICATION
     Route: 048
     Dates: start: 20180926
  6. PK-MERZ [Concomitant]
     Active Substance: AMANTADINE
     Indication: PRODUCT USED FOR UNKNOWN INDICATION
     Dosage: TID, 1/2 TABLET
     Route: 048
  7. SINEMET [Concomitant]
     Active Substance: CARBIDOPA\LEVODOPA
     Indication: PRODUCT USED FOR UNKNOWN INDICATION
     Dosage: ONE TABLET, OD
     Route: 048
  8. DUODOPA [Suspect]
     Active Substance: CARBIDOPA\LEVODOPA
     Indication: PRIMARY FAMILIAL BRAIN CALCIFICATION
     Dosage: MORNING DOSE 13.5 ML/HR, 3.1 ML/HR, CONTINUOUS RATE, 3ML EXTRA DOSE
     Route: 050
     Dates: start: 20180913

REACTIONS (4)
  - Abdominal rigidity [Unknown]
  - Abdominal distension [Unknown]
  - Gastrointestinal disorder [Not Recovered/Not Resolved]
  - Abdominal pain [Not Recovered/Not Resolved]

NARRATIVE: CASE EVENT DATE: 2018
